FAERS Safety Report 6572341-3 (Version None)
Quarter: 2010Q1

REPORT INFORMATION
  Report Type: 
  Country: None (occurrence: None)
  Receive Date: 20100205
  Receipt Date: 20100126
  Transmission Date: 20100710
  Serious: Yes (Hospitalization, Other)
  Sender: FDA-Public Use
  Company Number: FR-ABBOTT-10P-056-0622559-00

PATIENT
  Sex: Male

DRUGS (20)
  1. ZECLAR INJECTION [Suspect]
     Indication: DRUG USE FOR UNKNOWN INDICATION
     Route: 050
     Dates: start: 20080629, end: 20080714
  2. ROCEPHIN [Suspect]
     Indication: DRUG USE FOR UNKNOWN INDICATION
     Dosage: 2 G/40 ML
     Route: 050
     Dates: start: 20080629, end: 20080702
  3. IZILOX [Suspect]
     Indication: DRUG USE FOR UNKNOWN INDICATION
     Route: 050
     Dates: start: 20080629, end: 20080702
  4. CIPROFLOXACIN HCL [Suspect]
     Indication: DRUG USE FOR UNKNOWN INDICATION
     Route: 050
     Dates: start: 20080702, end: 20080704
  5. TAVANIC [Suspect]
     Indication: DRUG USE FOR UNKNOWN INDICATION
     Route: 050
     Dates: start: 20080703
  6. LOVENOX [Suspect]
     Indication: DRUG USE FOR UNKNOWN INDICATION
     Route: 058
     Dates: start: 20080705
  7. TAZOCILLINE [Suspect]
     Indication: DRUG USE FOR UNKNOWN INDICATION
     Route: 050
     Dates: start: 20080707, end: 20080711
  8. AERIUS [Suspect]
     Indication: DRUG USE FOR UNKNOWN INDICATION
     Route: 048
     Dates: start: 20080709
  9. VENOFER [Suspect]
     Indication: DRUG USE FOR UNKNOWN INDICATION
     Dates: start: 20080711
  10. TPN [Suspect]
     Indication: DRUG USE FOR UNKNOWN INDICATION
  11. ZYVOXID [Suspect]
     Indication: DRUG USE FOR UNKNOWN INDICATION
     Route: 048
     Dates: start: 20080714
  12. OMEPRAZOLE [Suspect]
     Indication: DRUG USE FOR UNKNOWN INDICATION
     Route: 048
     Dates: start: 20080717
  13. TIENAM [Suspect]
     Indication: DRUG USE FOR UNKNOWN INDICATION
     Route: 048
     Dates: start: 20080718
  14. PERFALGAN [Suspect]
     Indication: DRUG USE FOR UNKNOWN INDICATION
     Dates: start: 20080629, end: 20080717
  15. DOLIPRANE [Suspect]
     Indication: DRUG USE FOR UNKNOWN INDICATION
     Dates: start: 20080718
  16. INNOHEP [Concomitant]
     Indication: DRUG USE FOR UNKNOWN INDICATION
     Route: 050
     Dates: start: 20080629, end: 20080704
  17. SUCRALFATE [Concomitant]
     Indication: DRUG USE FOR UNKNOWN INDICATION
     Route: 048
     Dates: start: 20080630, end: 20080716
  18. SOLU-MEDROL [Concomitant]
     Indication: DRUG USE FOR UNKNOWN INDICATION
     Route: 048
     Dates: start: 20080720
  19. TRIFLUCAN [Concomitant]
     Indication: DRUG USE FOR UNKNOWN INDICATION
     Route: 048
     Dates: start: 20080725
  20. ATARAX [Concomitant]
     Indication: DRUG USE FOR UNKNOWN INDICATION
     Route: 048
     Dates: start: 20080725

REACTIONS (10)
  - ACUTE RESPIRATORY DISTRESS SYNDROME [None]
  - CHILLS [None]
  - CYTOLYTIC HEPATITIS [None]
  - DYSPNOEA [None]
  - JAUNDICE [None]
  - LEUKAEMIA [None]
  - MUSCULOSKELETAL STIFFNESS [None]
  - PNEUMONIA LEGIONELLA [None]
  - PO2 ABNORMAL [None]
  - RASH PUSTULAR [None]
